FAERS Safety Report 9768440 (Version 1)
Quarter: 2013Q4

REPORT INFORMATION
  Report Type: Spontaneous
  Country: RS (occurrence: RS)
  Receive Date: 20131217
  Receipt Date: 20131217
  Transmission Date: 20140711
  Serious: Yes (Other)
  Sender: FDA-Public Use
  Company Number: RS-ACTAVIS-2013-22712

PATIENT
  Age: 62 Year
  Sex: Male
  Weight: 69 kg

DRUGS (4)
  1. SINTOPOZID [Suspect]
     Indication: NON-SMALL CELL LUNG CANCER
     Dosage: 120 MG/M2
     Route: 042
     Dates: start: 20131125, end: 20131125
  2. SINPLATIN [Concomitant]
     Indication: PRODUCT USED FOR UNKNOWN INDICATION
     Dosage: 50 MG/M2, UNK
     Route: 065
     Dates: start: 20131002
  3. SINPLATIN [Concomitant]
     Dosage: 50 MG/M2, UNK
     Route: 065
     Dates: start: 20131030
  4. SINPLATIN [Concomitant]
     Dosage: 50 MG/M2, UNK
     Route: 065
     Dates: start: 20131125

REACTIONS (7)
  - Epilepsy [Recovering/Resolving]
  - Dyspnoea [Recovering/Resolving]
  - Muscle spasms [Recovering/Resolving]
  - Oropharyngeal pain [Recovering/Resolving]
  - Hyperaemia [Recovering/Resolving]
  - Sinus tachycardia [Recovering/Resolving]
  - Bronchospasm [Recovering/Resolving]
